FAERS Safety Report 25101919 (Version 1)
Quarter: 2025Q1

REPORT INFORMATION
  Report Type: Spontaneous
  Country: US (occurrence: US)
  Receive Date: 20250320
  Receipt Date: 20250320
  Transmission Date: 20250408
  Serious: No
  Sender: GLAXOSMITHKLINE
  Company Number: US-GSK-US2025029230

PATIENT
  Age: 64 Year
  Sex: Female

DRUGS (4)
  1. BENLYSTA [Suspect]
     Active Substance: BELIMUMAB
     Indication: Systemic lupus erythematosus
     Dosage: 200 MG, WE
     Route: 058
     Dates: start: 20241218
  2. DIAZEPAM [Concomitant]
     Active Substance: DIAZEPAM
     Indication: Anxiety
     Dates: start: 2018
  3. PAXIL [Concomitant]
     Active Substance: PAROXETINE HYDROCHLORIDE
     Indication: Depression
     Dosage: 30 MG, QD
     Dates: start: 1996
  4. REMERON [Concomitant]
     Active Substance: MIRTAZAPINE
     Indication: Depression
     Dosage: 30 MG, QD
     Dates: start: 201801

REACTIONS (10)
  - Pollakiuria [Unknown]
  - Lipiduria [Not Recovered/Not Resolved]
  - Dysuria [Not Recovered/Not Resolved]
  - Muscular weakness [Unknown]
  - Rash [Unknown]
  - Urine abnormality [Not Recovered/Not Resolved]
  - Back pain [Not Recovered/Not Resolved]
  - Asthenia [Unknown]
  - Ovarian mass [Unknown]
  - Feeling abnormal [Unknown]

NARRATIVE: CASE EVENT DATE: 20241201
